FAERS Safety Report 23380590 (Version 1)
Quarter: 2024Q1

REPORT INFORMATION
  Report Type: Spontaneous
  Country: CA (occurrence: CA)
  Receive Date: 20240109
  Receipt Date: 20240109
  Transmission Date: 20240409
  Serious: Yes (Other)
  Sender: FDA-Public Use
  Company Number: CA-RISINGPHARMA-CA-2023RISLIT00198

PATIENT
  Age: 20 Month
  Sex: Male

DRUGS (1)
  1. MORPHINE SULFATE [Suspect]
     Active Substance: MORPHINE SULFATE
     Indication: Product used for unknown indication
     Route: 065

REACTIONS (2)
  - Toxic leukoencephalopathy [Unknown]
  - Overdose [Unknown]
